FAERS Safety Report 9707324 (Version 1)
Quarter: 2013Q4

REPORT INFORMATION
  Report Type: Spontaneous
  Country: US (occurrence: US)
  Receive Date: 20131125
  Receipt Date: 20131125
  Transmission Date: 20140711
  Serious: No
  Sender: FDA-Public Use
  Company Number: US-GLAXOSMITHKLINE-A1015984A

PATIENT
  Age: 59 Year
  Sex: Male

DRUGS (14)
  1. FLOVENT [Suspect]
     Indication: PRODUCT USED FOR UNKNOWN INDICATION
     Dosage: 1PUFF SINGLE DOSE
     Route: 055
     Dates: start: 20130314
  2. COMBIVENT [Concomitant]
  3. KLOR-CON [Concomitant]
  4. SPIRONOLACTONE [Concomitant]
  5. METOPROLOL [Concomitant]
  6. AMIODARONE [Concomitant]
  7. WARFARIN [Concomitant]
  8. FISH OIL [Concomitant]
  9. ASPIRIN [Concomitant]
  10. FUROSEMIDE [Concomitant]
  11. GEMFIBROZIL [Concomitant]
  12. HYDROCODONE [Concomitant]
  13. NITROSTAT [Concomitant]
  14. VIAGRA [Concomitant]

REACTIONS (1)
  - Headache [Recovering/Resolving]
